FAERS Safety Report 15702938 (Version 1)
Quarter: 2018Q4

REPORT INFORMATION
  Report Type: Spontaneous
  Country: US (occurrence: US)
  Receive Date: 20181208
  Receipt Date: 20181208
  Transmission Date: 20190205
  Serious: Yes (Disabling)
  Sender: FDA-Public Use
  Company Number: None

PATIENT
  Age: 54 Year
  Sex: Female
  Weight: 87.75 kg

DRUGS (6)
  1. CYTOMEL [Concomitant]
     Active Substance: LIOTHYRONINE SODIUM
  2. TIROSINT [Concomitant]
     Active Substance: LEVOTHYROXINE SODIUM
  3. XIIDRA [Concomitant]
     Active Substance: LIFITEGRAST
  4. FEVERFEW [Concomitant]
     Active Substance: FEVERFEW
  5. ASPIRIN. [Concomitant]
     Active Substance: ASPIRIN
  6. SYNTHROID [Suspect]
     Active Substance: LEVOTHYROXINE SODIUM
     Indication: HYPOTHYROIDISM
     Dosage: ?          QUANTITY:1 TABLET(S);?
     Route: 048

REACTIONS (2)
  - Dysphagia [None]
  - Urticaria [None]

NARRATIVE: CASE EVENT DATE: 20180512
